FAERS Safety Report 4552845-5 (Version None)
Quarter: 2005Q1

REPORT INFORMATION
  Report Type: 
  Country: None (occurrence: None)
  Receive Date: 20050114
  Receipt Date: 20041209
  Transmission Date: 20050727
  Serious: Yes (Hospitalization, Other)
  Sender: FDA-Public Use
  Company Number: US-MERCK-0412USA01356

PATIENT
  Age: 14 Year
  Sex: Female

DRUGS (2)
  1. SINGULAIR [Suspect]
     Indication: COUGH
     Route: 048
  2. [THERAPY UNSPECIFIED] [Suspect]
     Route: 065

REACTIONS (6)
  - CONFUSIONAL STATE [None]
  - DEHYDRATION [None]
  - OVERDOSE [None]
  - PUPILLARY DISORDER [None]
  - SUICIDE ATTEMPT [None]
  - TACHYCARDIA [None]
